FAERS Safety Report 20988533 (Version 1)
Quarter: 2022Q2

REPORT INFORMATION
  Report Type: Report from Study
  Country: IE (occurrence: IE)
  Receive Date: 20220621
  Receipt Date: 20220621
  Transmission Date: 20220721
  Serious: Yes (Hospitalization)
  Sender: FDA-Public Use
  Company Number: IE-NOVARTISPH-NVSC2022IE089879

PATIENT
  Age: 67 Year
  Sex: Female

DRUGS (1)
  1. VOTRIENT [Suspect]
     Active Substance: PAZOPANIB HYDROCHLORIDE
     Indication: Mass
     Dosage: 10 MG
     Route: 048

REACTIONS (3)
  - Lower respiratory tract infection [Unknown]
  - Asthenia [Unknown]
  - Product use in unapproved indication [Unknown]
